FAERS Safety Report 7946015-8 (Version None)
Quarter: 2011Q4

REPORT INFORMATION
  Report Type: 
  Country: None (occurrence: None)
  Receive Date: 20111129
  Receipt Date: 20111116
  Transmission Date: 20120403
  Serious: Yes (Death)
  Sender: FDA-Public Use
  Company Number: US-GLAXOSMITHKLINE-A0795865A

PATIENT
  Age: 77 Year
  Sex: Female

DRUGS (1)
  1. AVANDAMET [Suspect]
     Indication: DIABETES MELLITUS
     Route: 048
     Dates: start: 20040301, end: 20050902

REACTIONS (3)
  - ATRIAL FLUTTER [None]
  - MYOCARDIAL INFARCTION [None]
  - CARDIO-RESPIRATORY ARREST [None]
